FAERS Safety Report 5881186-9 (Version None)
Quarter: 2008Q3

REPORT INFORMATION
  Report Type: 
  Country: None (occurrence: None)
  Receive Date: 20080912
  Receipt Date: 20080623
  Transmission Date: 20090109
  Serious: No
  Sender: FDA-Public Use
  Company Number: US-ABBOTT-08P-163-0459026-00

PATIENT
  Sex: Male
  Weight: 86.26 kg

DRUGS (2)
  1. HUMIRA [Suspect]
     Indication: PSORIASIS
     Dosage: INITIAL LOADING DOSE OF 2 INJECTIONS
     Route: 058
     Dates: start: 20080325, end: 20080325
  2. HUMIRA [Suspect]
     Route: 058
     Dates: start: 20080401

REACTIONS (1)
  - OVERDOSE [None]
